FAERS Safety Report 9230448 (Version 2)
Quarter: 2013Q2

REPORT INFORMATION
  Report Type: Spontaneous
  Country: US (occurrence: None)
  Receive Date: 20121031
  Receipt Date: 20130107
  Transmission Date: 20140414
  Serious: No
  Sender: FDA-Public Use
  Company Number: PHEH2012US016876

PATIENT
  Age: 42 Year
  Sex: Female
  Weight: 77.1 kg

DRUGS (9)
  1. GILENYA (FTY) CAPSULE, 0.5 MG [Suspect]
     Route: 048
  2. IBPROFEN (IBUPROFEN) [Concomitant]
  3. MAXALT (RIZATRIPTAN) [Concomitant]
  4. VICODIN (HYDROCODONE BITARTRATE, PARACETAMOL) [Concomitant]
  5. VITAMIN D (ERGOCALCIFEROL) [Concomitant]
  6. VITAMIN C [Concomitant]
  7. MAGNESIUM (MAGNESIUM) [Concomitant]
  8. CALCIUM WITH VITAMIN D (CALCIUM PHOSPHATE, CALCIUM SODIUM LACTATE, ERGOCALCIFEROL) [Concomitant]
  9. VITAMIN B COMPLEX 9CALCIUM PANTOTHENATE, NICOTINAMIDE, PYRIDOXINE HYDROCHLORIDE, RIBOFLAVIN, THIAMINE HYDOCHLORIDE) [Concomitant]

REACTIONS (6)
  - Fatigue [None]
  - Weight decreased [None]
  - Alopecia [None]
  - Influenza [None]
  - Body temperature increased [None]
  - Nausea [None]
